FAERS Safety Report 20784917 (Version 1)
Quarter: 2022Q2

REPORT INFORMATION
  Report Type: Spontaneous
  Country: US (occurrence: None)
  Receive Date: 20220503
  Receipt Date: 20220503
  Transmission Date: 20220721
  Serious: Yes (Death)
  Sender: FDA-Public Use
  Company Number: None

PATIENT
  Age: 44 Year
  Sex: Male
  Weight: 73.35 kg

DRUGS (1)
  1. BEBTELOVIMAB [Suspect]
     Active Substance: BEBTELOVIMAB
     Dosage: OTHER FREQUENCY : ONCE;?
     Route: 042
     Dates: start: 20220429

REACTIONS (1)
  - Death [None]

NARRATIVE: CASE EVENT DATE: 20220430
